FAERS Safety Report 14232311 (Version 1)
Quarter: 2017Q4

REPORT INFORMATION
  Report Type: Spontaneous
  Country: US (occurrence: US)
  Receive Date: 20171128
  Receipt Date: 20171128
  Transmission Date: 20180321
  Serious: Yes (Hospitalization)
  Sender: FDA-Public Use
  Company Number: US-FRESENIUS MEDICAL CARE RENAL THERAPIES GROUP-FMC-1711-001458

PATIENT
  Sex: Male
  Weight: 96 kg

DRUGS (12)
  1. RENVELA [Concomitant]
     Active Substance: SEVELAMER CARBONATE
  2. CULTURELLE [Concomitant]
     Active Substance: LACTOBACILLUS RHAMNOSUS
  3. LANTUS [Concomitant]
     Active Substance: INSULIN GLARGINE
  4. DELFLEX [Suspect]
     Active Substance: CALCIUM CHLORIDE\DEXTROSE\MAGNESIUM CHLORIDE\SODIUM CHLORIDE\SODIUM LACTATE
     Indication: END STAGE RENAL DISEASE
     Route: 033
     Dates: start: 20110124
  5. PROCRIT [Concomitant]
     Active Substance: ERYTHROPOIETIN
  6. CALCITRIOL. [Concomitant]
     Active Substance: CALCITRIOL
  7. POTASSIUM CHLORIDE. [Concomitant]
     Active Substance: POTASSIUM CHLORIDE
  8. OXYCODONE [Concomitant]
     Active Substance: OXYCODONE
  9. INSULIN GLARGINE [Concomitant]
     Active Substance: INSULIN GLARGINE
  10. CARVEDILOL. [Concomitant]
     Active Substance: CARVEDILOL
  11. MUCINEX [Concomitant]
     Active Substance: GUAIFENESIN
  12. FAMOTIDINE. [Concomitant]
     Active Substance: FAMOTIDINE

REACTIONS (2)
  - Azotaemia [Recovering/Resolving]
  - Device malfunction [Recovering/Resolving]
